FAERS Safety Report 24616725 (Version 1)
Quarter: 2024Q4

REPORT INFORMATION
  Report Type: Spontaneous
  Country: US (occurrence: US)
  Receive Date: 20241114
  Receipt Date: 20241114
  Transmission Date: 20250115
  Serious: Yes (Death, Other)
  Sender: BRISTOL-MYERS SQUIBB COMPANY
  Company Number: US-BRISTOL-MYERS SQUIBB COMPANY-2024-177579

PATIENT
  Age: 71 Year
  Sex: Female

DRUGS (2)
  1. OPDIVO [Suspect]
     Active Substance: NIVOLUMAB
     Indication: Uterine cancer
     Dosage: DOSE : 480MG | 116MG;     FREQ : EVERY 14 DAYS | EVERY 42 DAYS
  2. YERVOY [Suspect]
     Active Substance: IPILIMUMAB
     Indication: Uterine cancer

REACTIONS (2)
  - Death [Fatal]
  - Off label use [Unknown]
